FAERS Safety Report 7587683-2 (Version None)
Quarter: 2011Q3

REPORT INFORMATION
  Report Type: 
  Country: None (occurrence: None)
  Receive Date: 20110704
  Receipt Date: 20110629
  Transmission Date: 20111222
  Serious: Yes (Death)
  Sender: FDA-Public Use
  Company Number: PHHY2010US79538

PATIENT
  Age: 96 Year
  Sex: Female
  Weight: 42.63 kg

DRUGS (12)
  1. GLEEVEC [Suspect]
     Indication: CHRONIC MYELOID LEUKAEMIA
     Dosage: 200 MG, DAILY
     Route: 048
     Dates: start: 20100412
  2. POTASSIUM CHLORIDE [Concomitant]
  3. POTASSIUM CHLORIDE [Concomitant]
  4. NEXIUM [Concomitant]
  5. FUROSEMIDE [Concomitant]
  6. ASPIRIN [Concomitant]
  7. VALIUM [Concomitant]
  8. DIGOXIN [Concomitant]
  9. AMLODIPINE [Concomitant]
  10. ZESTRIL [Concomitant]
  11. PROCRIT [Concomitant]
  12. TOPRAL [Concomitant]

REACTIONS (2)
  - DEATH [None]
  - ARTHRALGIA [None]
